FAERS Safety Report 9914161 (Version 2)
Quarter: 2014Q1

REPORT INFORMATION
  Report Type: Spontaneous
  Country: US (occurrence: US)
  Receive Date: 20140220
  Receipt Date: 20140225
  Transmission Date: 20141002
  Serious: Yes (Other)
  Sender: FDA-Public Use
  Company Number: US-PURDUE-USA-2014-0111245

PATIENT
  Sex: Female

DRUGS (5)
  1. OXYCONTIN (NDA 22-272) [Suspect]
     Indication: PAIN
     Dosage: 20 MG, BID
     Route: 048
  2. OXYCONTIN (NDA 22-272) [Suspect]
     Indication: BREAKTHROUGH PAIN
     Dosage: 30 MG, QID
     Route: 048
  3. OXYCONTIN (NDA 22-272) [Suspect]
     Dosage: 40 MG, BID
     Route: 048
  4. MOTRIN [Suspect]
     Indication: BREAKTHROUGH PAIN
     Route: 048
  5. LORTAB                             /00607101/ [Concomitant]
     Indication: BREAKTHROUGH PAIN
     Route: 048

REACTIONS (9)
  - Ulcer haemorrhage [Unknown]
  - Dysuria [Unknown]
  - Heart rate increased [Unknown]
  - Chest pain [Unknown]
  - Dry eye [Unknown]
  - Insomnia [Unknown]
  - Tachycardia [Unknown]
  - Drug effect decreased [Unknown]
  - Lethargy [Unknown]
